FAERS Safety Report 4303332-0 (Version None)
Quarter: 2004Q1

REPORT INFORMATION
  Report Type: 
  Country: None (occurrence: None)
  Receive Date: 20040223
  Receipt Date: 20030505
  Transmission Date: 20041129
  Serious: Yes (Hospitalization, Other)
  Sender: FDA-Public Use
  Company Number: KII-2003-0007221

PATIENT
  Age: 19 Year
  Sex: Male

DRUGS (3)
  1. MORPHINE SULFATE [Suspect]
     Indication: PAIN
     Dosage: SEE IMAGE
     Dates: start: 20030504
  2. MORPHINE SULFATE [Suspect]
     Indication: PAIN
     Dosage: SEE IMAGE
     Dates: start: 20030505
  3. METHADONE HCL [Suspect]
     Indication: DRUG USE FOR UNKNOWN INDICATION

REACTIONS (13)
  - AGITATION [None]
  - APNOEA [None]
  - BLOOD CALCIUM DECREASED [None]
  - CHEST PAIN [None]
  - CYANOSIS [None]
  - DEPRESSED LEVEL OF CONSCIOUSNESS [None]
  - HYPERHIDROSIS [None]
  - LUNG INFILTRATION [None]
  - MYDRIASIS [None]
  - OXYGEN SATURATION DECREASED [None]
  - REFUSAL OF TREATMENT BY PATIENT [None]
  - WHITE BLOOD CELL COUNT INCREASED [None]
  - WHITE BLOOD CELL DISORDER [None]
